FAERS Safety Report 9843484 (Version 1)
Quarter: 2013Q4

REPORT INFORMATION
  Report Type: Spontaneous
  Country: US (occurrence: None)
  Receive Date: 20131219
  Receipt Date: 20131219
  Transmission Date: 20140711
  Serious: Yes (Death)
  Sender: FDA-Public Use
  Company Number: 163-20785-13063247

PATIENT
  Age: 54 Year
  Sex: Female

DRUGS (9)
  1. THALOMID (THALIDOMIDE) (CAPSULES) [Suspect]
     Indication: IRON DEFICIENCY ANAEMIA
     Route: 048
     Dates: start: 20130320
  2. CLONIDINE HCL (CLONIDINE HYDROCHLORIDE) [Concomitant]
  3. CUBICIN(DAPTOMYCIN) [Concomitant]
  4. EPOGEN(EPOETIN ALFA) [Concomitant]
  5. GENERLAC(LACTULOSE) [Concomitant]
  6. HECTOROL(DOXERCALCIFEROL) [Concomitant]
  7. IRON (IRON) [Concomitant]
  8. LASIX FUROSEMIDE) [Concomitant]
  9. LIQUACEL(OTHER THERAPETUIC PRODUCTS) [Concomitant]

REACTIONS (1)
  - Death [None]
